FAERS Safety Report 26163579 (Version 1)
Quarter: 2025Q4

REPORT INFORMATION
  Report Type: Report from Study
  Country: KW (occurrence: KW)
  Receive Date: 20251216
  Receipt Date: 20251216
  Transmission Date: 20260117
  Serious: Yes (Hospitalization, Other)
  Sender: PFIZER
  Company Number: KW-PFIZER INC-PV202500139092

PATIENT
  Age: 63 Year
  Sex: Female

DRUGS (1)
  1. IBRANCE [Suspect]
     Active Substance: PALBOCICLIB
     Indication: Breast cancer metastatic
     Dosage: ONCE DAILY FOR 21 DAYS FOLLOWED BY 7 RESTING DAYS
     Route: 048

REACTIONS (5)
  - Urinary tract infection [Unknown]
  - Pyrexia [Unknown]
  - Uterine haemorrhage [Unknown]
  - Illness [Unknown]
  - Sleep disorder [Unknown]
